FAERS Safety Report 6201261-9 (Version None)
Quarter: 2009Q2

REPORT INFORMATION
  Report Type: 
  Country: None (occurrence: None)
  Receive Date: 20090526
  Receipt Date: 20090514
  Transmission Date: 20091009
  Serious: Yes (Hospitalization, Other)
  Sender: FDA-Public Use
  Company Number: PHHY2009IE09864

PATIENT
  Sex: Male

DRUGS (3)
  1. CLOZARIL [Suspect]
     Indication: SCHIZOPHRENIA
     Dosage: 400 MG DAILY
     Route: 048
     Dates: start: 20020325
  2. CLOZARIL [Interacting]
     Indication: PSYCHOTIC DISORDER
  3. WARFARIN SODIUM [Interacting]
     Indication: CAVERNOUS SINUS THROMBOSIS
     Dosage: UNK
     Route: 048
     Dates: start: 20090420

REACTIONS (6)
  - BLINDNESS [None]
  - CAVERNOUS SINUS THROMBOSIS [None]
  - CELLULITIS ORBITAL [None]
  - DRUG INTERACTION [None]
  - SEPSIS [None]
  - WEIL'S DISEASE [None]
